FAERS Safety Report 7992996-6 (Version None)
Quarter: 2011Q4

REPORT INFORMATION
  Report Type: 
  Country: None (occurrence: None)
  Receive Date: 20111219
  Receipt Date: 20110621
  Transmission Date: 20120403
  Serious: No
  Sender: FDA-Public Use
  Company Number: US-ASTRAZENECA-2011SE37785

PATIENT
  Age: 81 Year
  Sex: Male
  Weight: 67.1 kg

DRUGS (9)
  1. CRESTOR [Suspect]
     Route: 048
  2. PLAVIX [Concomitant]
  3. AVAPRO [Concomitant]
  4. ASPIRIN [Concomitant]
  5. FLOMAX [Concomitant]
  6. KLOR-CON [Concomitant]
  7. ACTOS [Concomitant]
  8. FUROSEMIDE [Concomitant]
  9. AMLODIPINE [Concomitant]

REACTIONS (1)
  - DIARRHOEA [None]
